FAERS Safety Report 6927937-3 (Version None)
Quarter: 2010Q3

REPORT INFORMATION
  Report Type: 
  Country: None (occurrence: None)
  Receive Date: 20100816
  Receipt Date: 20100816
  Transmission Date: 20110219
  Serious: Yes (Life-Threatening, Hospitalization)
  Sender: FDA-Public Use
  Company Number: None

PATIENT
  Age: 42 Year
  Sex: Male

DRUGS (1)
  1. HYDRALAZINE HCL [Suspect]
     Indication: HYPERTENSION
     Dosage: 10  ONE TIME IV
     Route: 042

REACTIONS (6)
  - ANXIETY [None]
  - CARDIAC ENZYMES INCREASED [None]
  - CHEST DISCOMFORT [None]
  - ELECTROCARDIOGRAM U-WAVE ABNORMALITY [None]
  - TACHYCARDIA [None]
  - TROPONIN INCREASED [None]
